FAERS Safety Report 4825635-3 (Version None)
Quarter: 2005Q4

REPORT INFORMATION
  Report Type: 
  Country: None (occurrence: None)
  Receive Date: 20051111
  Receipt Date: 20050824
  Transmission Date: 20060501
  Serious: No
  Sender: FDA-Public Use
  Company Number: US-GLAXOSMITHKLINE-A0572257A

PATIENT
  Age: 58 Year
  Sex: Female
  Weight: 48.6 kg

DRUGS (1)
  1. MELPHALAN [Suspect]
     Indication: MULTIPLE MYELOMA
     Dates: start: 20041230

REACTIONS (2)
  - ANOREXIA [None]
  - NAUSEA [None]
